FAERS Safety Report 17911837 (Version 1)
Quarter: 2020Q2

REPORT INFORMATION
  Report Type: Spontaneous
  Country: IN (occurrence: IN)
  Receive Date: 20200618
  Receipt Date: 20200618
  Transmission Date: 20200714
  Serious: Yes (Hospitalization)
  Sender: FDA-Public Use
  Company Number: IN-ROCHE-2624966

PATIENT
  Age: 49 Year
  Sex: Male
  Weight: 68.8 kg

DRUGS (49)
  1. PHENIRAMINE MALEATE [Concomitant]
     Active Substance: PHENIRAMINE MALEATE
     Route: 048
     Dates: start: 20200603, end: 20200603
  2. CHLORHEXIDINE [Concomitant]
     Active Substance: CHLORHEXIDINE
     Route: 048
     Dates: start: 20200307
  3. METOCLOPRAMIDE. [Concomitant]
     Active Substance: METOCLOPRAMIDE
     Route: 048
     Dates: start: 20200307, end: 20200311
  4. TRAMADOL/ACETAMINOPHEN [Concomitant]
     Active Substance: ACETAMINOPHEN\TRAMADOL
     Indication: PAIN
     Route: 048
     Dates: start: 20200307, end: 20200313
  5. DERIPHYLLIN [Concomitant]
     Active Substance: ETOFYLLINE\THEOPHYLLINE
     Route: 042
     Dates: start: 20200313, end: 20200316
  6. DOMPERIDONE;RABEPRAZOLE [Concomitant]
     Route: 048
     Dates: start: 20200331, end: 20200331
  7. PHENIRAMINE MALEATE [Concomitant]
     Active Substance: PHENIRAMINE MALEATE
     Route: 048
     Dates: start: 20200331, end: 20200331
  8. DOMPERIDONE;PANTOPRAZOLE [Concomitant]
     Route: 048
     Dates: start: 20200307, end: 20200311
  9. DOLO [PARACETAMOL] [Concomitant]
     Route: 048
     Dates: start: 20200603, end: 20200603
  10. ULPAN D [Concomitant]
     Route: 048
     Dates: start: 20200401, end: 20200405
  11. RITUXIMAB. [Suspect]
     Active Substance: RITUXIMAB
     Route: 042
     Dates: start: 20200512, end: 20200512
  12. ONDANSETRON [Concomitant]
     Active Substance: ONDANSETRON
     Route: 048
     Dates: start: 20200513, end: 20200517
  13. DOLO [PARACETAMOL] [Concomitant]
     Route: 048
     Dates: start: 20200421, end: 20200421
  14. DOLO [PARACETAMOL] [Concomitant]
     Route: 048
     Dates: start: 20200512, end: 20200512
  15. DOMPERIDONE;RABEPRAZOLE [Concomitant]
     Route: 048
     Dates: start: 20200603, end: 20200603
  16. ULPAN D [Concomitant]
     Route: 048
     Dates: start: 20200604, end: 20200608
  17. PEGFILGRASTIM [Concomitant]
     Active Substance: PEGFILGRASTIM
     Route: 058
     Dates: start: 20200402, end: 20200402
  18. PEGFILGRASTIM [Concomitant]
     Active Substance: PEGFILGRASTIM
     Route: 058
     Dates: start: 20200514, end: 20200514
  19. RITUXIMAB. [Suspect]
     Active Substance: RITUXIMAB
     Indication: DIFFUSE LARGE B-CELL LYMPHOMA
     Route: 042
     Dates: start: 20200306
  20. RITUXIMAB. [Suspect]
     Active Substance: RITUXIMAB
     Route: 042
     Dates: start: 20200421, end: 20200421
  21. FOLIC ACID. [Concomitant]
     Active Substance: FOLIC ACID
     Route: 048
     Dates: start: 20200307
  22. METOCLOPRAMIDE. [Concomitant]
     Active Substance: METOCLOPRAMIDE
     Route: 048
     Dates: start: 20200604, end: 20200608
  23. SODIUM PICOSULPHATE [Concomitant]
     Active Substance: SODIUM PICOSULFATE
     Route: 048
     Dates: start: 20200314, end: 20200314
  24. SODIUM PICOSULPHATE [Concomitant]
     Active Substance: SODIUM PICOSULFATE
     Route: 065
     Dates: start: 20200316
  25. CONTRAMAL [Concomitant]
     Active Substance: TRAMADOL HYDROCHLORIDE
     Route: 042
     Dates: start: 20200313, end: 20200316
  26. DUOLIN [IPRATROPIUM BROMIDE;SALBUTAMOL] [Concomitant]
     Route: 065
     Dates: start: 20200313, end: 20200316
  27. DOMPERIDONE;RABEPRAZOLE [Concomitant]
     Route: 048
     Dates: start: 20200421, end: 20200421
  28. ULPAN D [Concomitant]
     Route: 048
     Dates: start: 20200609
  29. PHENIRAMINE MALEATE [Concomitant]
     Active Substance: PHENIRAMINE MALEATE
     Route: 048
     Dates: start: 20200512, end: 20200512
  30. ONDANSETRON [Concomitant]
     Active Substance: ONDANSETRON
     Route: 048
     Dates: start: 20200422, end: 20200426
  31. METOCLOPRAMIDE. [Concomitant]
     Active Substance: METOCLOPRAMIDE
     Route: 048
     Dates: start: 20200401, end: 20200405
  32. PANTOPRAZOLE SODIUM. [Concomitant]
     Active Substance: PANTOPRAZOLE SODIUM
     Route: 042
     Dates: start: 20200313, end: 20200316
  33. DEXONA [DEXAMETHASONE] [Concomitant]
     Route: 042
     Dates: start: 20200313, end: 20200316
  34. RITUXIMAB. [Suspect]
     Active Substance: RITUXIMAB
     Route: 042
     Dates: start: 20200603, end: 20200603
  35. METOCLOPRAMIDE. [Concomitant]
     Active Substance: METOCLOPRAMIDE
     Route: 048
     Dates: start: 20200422, end: 20200426
  36. SODIUM PICOSULPHATE [Concomitant]
     Active Substance: SODIUM PICOSULFATE
     Indication: CONSTIPATION
     Route: 048
     Dates: start: 20200307, end: 20200313
  37. RITUXIMAB. [Suspect]
     Active Substance: RITUXIMAB
     Route: 042
     Dates: start: 20200331, end: 20200331
  38. SODIUM PHOSPHATE [Concomitant]
     Active Substance: SODIUM PHOSPHATE
     Route: 054
     Dates: start: 20200315, end: 20200315
  39. DOLO [PARACETAMOL] [Concomitant]
     Route: 048
     Dates: start: 20200331, end: 20200331
  40. ULPAN D [Concomitant]
     Route: 048
     Dates: start: 20200513, end: 20200517
  41. PEGFILGRASTIM [Concomitant]
     Active Substance: PEGFILGRASTIM
     Route: 058
     Dates: start: 20200423, end: 20200423
  42. PHENIRAMINE MALEATE [Concomitant]
     Active Substance: PHENIRAMINE MALEATE
     Route: 048
     Dates: start: 20200421, end: 20200421
  43. ASCORBIC ACID;VITAMIN B COMPLEX [Concomitant]
     Route: 048
     Dates: start: 20200307
  44. DOMPERIDONE;PANTOPRAZOLE [Concomitant]
     Route: 048
     Dates: start: 20200317, end: 20200321
  45. ONDANSETRON [Concomitant]
     Active Substance: ONDANSETRON
     Route: 048
     Dates: start: 20200307, end: 20200311
  46. METOCLOPRAMIDE. [Concomitant]
     Active Substance: METOCLOPRAMIDE
     Route: 048
     Dates: start: 20200513, end: 20200517
  47. DOMPERIDONE;RABEPRAZOLE [Concomitant]
     Route: 048
     Dates: start: 20200512, end: 20200512
  48. EMESET [Concomitant]
     Active Substance: ONDANSETRON HYDROCHLORIDE
     Route: 048
     Dates: start: 20200604, end: 20200608
  49. PREGABA-M [Concomitant]
     Route: 048
     Dates: start: 20200604

REACTIONS (1)
  - Enteritis [Unknown]

NARRATIVE: CASE EVENT DATE: 20200609
